FAERS Safety Report 16711923 (Version 1)
Quarter: 2019Q3

REPORT INFORMATION
  Report Type: Spontaneous
  Country: DE (occurrence: DE)
  Receive Date: 20190816
  Receipt Date: 20190816
  Transmission Date: 20191004
  Serious: Yes (Other)
  Sender: FDA-Public Use
  Company Number: DE-PROVELL PHARMACEUTICALS-2073257

PATIENT
  Age: 63 Year
  Sex: Female

DRUGS (3)
  1. EUTHYROX [Suspect]
     Active Substance: LEVOTHYROXINE SODIUM
     Indication: POST PROCEDURAL HYPOTHYROIDISM
     Dates: start: 20190715, end: 201907
  2. EUTHYROX [Suspect]
     Active Substance: LEVOTHYROXINE SODIUM
     Dates: start: 201907
  3. EUTHYROX [Suspect]
     Active Substance: LEVOTHYROXINE SODIUM
     Dates: end: 201907

REACTIONS (6)
  - Hyperthyroidism [Recovering/Resolving]
  - Nervousness [Recovering/Resolving]
  - Sleep disorder [Recovering/Resolving]
  - Head discomfort [Recovering/Resolving]
  - Restlessness [Recovering/Resolving]
  - Chest discomfort [Recovering/Resolving]

NARRATIVE: CASE EVENT DATE: 201907
